FAERS Safety Report 9163466 (Version 1)
Quarter: 2013Q1

REPORT INFORMATION
  Report Type: Spontaneous
  Country: JP (occurrence: JP)
  Receive Date: 20130314
  Receipt Date: 20130314
  Transmission Date: 20140127
  Serious: Yes (Other)
  Sender: FDA-Public Use
  Company Number: JP-PFIZER INC-2012331418

PATIENT
  Age: 85 Year
  Sex: Male

DRUGS (1)
  1. SELARA [Suspect]
     Route: 048

REACTIONS (1)
  - Infection [Recovered/Resolved]
